FAERS Safety Report 8068341-7 (Version None)
Quarter: 2012Q1

REPORT INFORMATION
  Report Type: 
  Country: None (occurrence: None)
  Receive Date: 20120124
  Receipt Date: 20111013
  Transmission Date: 20120608
  Serious: No
  Sender: FDA-Public Use
  Company Number: US-AMGEN-USASP2011053054

PATIENT
  Age: 54 Year
  Sex: Male

DRUGS (3)
  1. VITAMIN D [Concomitant]
  2. PROLIA [Suspect]
     Indication: BONE DISORDER
     Dosage: 60 MG, UNK
     Dates: start: 20110901
  3. CALCIUM [Concomitant]

REACTIONS (2)
  - DIZZINESS [None]
  - INJECTION SITE PAIN [None]
